FAERS Safety Report 25549405 (Version 2)
Quarter: 2025Q3

REPORT INFORMATION
  Report Type: Report from Study
  Country: US (occurrence: US)
  Receive Date: 20250714
  Receipt Date: 20250826
  Transmission Date: 20251020
  Serious: No
  Sender: AGIOS PHARMACEUTICALS
  Company Number: US-AGIOS-2506US04327

PATIENT
  Sex: Female

DRUGS (1)
  1. MITAPIVAT [Suspect]
     Active Substance: MITAPIVAT
     Indication: Pyruvate kinase deficiency anaemia
     Route: 048
     Dates: start: 20230308

REACTIONS (6)
  - Impaired healing [Unknown]
  - Limb injury [Unknown]
  - Product dose omission issue [Unknown]
  - Chemotherapy [Unknown]
  - Skin ulcer [Unknown]
  - Haemoglobin decreased [Unknown]
